FAERS Safety Report 6901237-X (Version None)
Quarter: 2010Q3

REPORT INFORMATION
  Report Type: 
  Country: None (occurrence: None)
  Receive Date: 20100803
  Receipt Date: 20100715
  Transmission Date: 20110219
  Serious: No
  Sender: FDA-Public Use
  Company Number: US-BAYER-201018155BCC

PATIENT
  Age: 61 Year
  Sex: Female
  Weight: 66 kg

DRUGS (9)
  1. ALEVE (CAPLET) [Suspect]
     Indication: ARTHRALGIA
     Dosage: UNIT DOSE: 1 DF
     Route: 048
     Dates: start: 20100601, end: 20100601
  2. ALEVE (CAPLET) [Suspect]
     Dosage: UNIT DOSE: 1 DF
     Route: 048
     Dates: start: 20100701
  3. ZYRTEC [Concomitant]
     Route: 065
  4. CYCLOBENZAPRINE [Concomitant]
     Route: 065
  5. AVALIDE [Concomitant]
     Route: 065
  6. CALTRATE [Concomitant]
     Route: 065
  7. GLUCOSAMINE-CHONDROITIN [Concomitant]
     Route: 065
  8. CENTRUM SILVER [Concomitant]
     Route: 065
  9. PRILOSEC [Concomitant]
     Route: 065
     Dates: start: 20100707

REACTIONS (3)
  - ABDOMINAL DISCOMFORT [None]
  - CONTUSION [None]
  - OEDEMA PERIPHERAL [None]
